FAERS Safety Report 10921777 (Version 1)
Quarter: 2015Q1

REPORT INFORMATION
  Report Type: Spontaneous
  Country: DK (occurrence: DK)
  Receive Date: 20150317
  Receipt Date: 20150317
  Transmission Date: 20150721
  Serious: Yes (Hospitalization, Other)
  Sender: FDA-Public Use
  Company Number: DK-WATSON-2015-04791

PATIENT
  Age: 19 Year
  Sex: Male

DRUGS (3)
  1. DIVALPROEX SODIUM DR [Suspect]
     Active Substance: DIVALPROEX SODIUM
     Indication: NEURONAL CEROID LIPOFUSCINOSIS
     Dosage: 1000 MG, DAILY
     Route: 065
  2. QUETIAPIN [Concomitant]
     Active Substance: QUETIAPINE
     Indication: NEURONAL CEROID LIPOFUSCINOSIS
     Dosage: 200 MG, DAILY
     Route: 065
  3. OXCARBAZEPINE. [Concomitant]
     Active Substance: OXCARBAZEPINE
     Indication: NEURONAL CEROID LIPOFUSCINOSIS
     Dosage: 1500 MG, DAILY
     Route: 065

REACTIONS (2)
  - Hyperammonaemic encephalopathy [Recovered/Resolved]
  - Anticonvulsant drug level increased [Unknown]
